FAERS Safety Report 16943848 (Version 1)
Quarter: 2019Q4

REPORT INFORMATION
  Report Type: Spontaneous
  Country: GB (occurrence: GB)
  Receive Date: 20191022
  Receipt Date: 20191022
  Transmission Date: 20200122
  Serious: Yes (Other)
  Sender: FDA-Public Use
  Company Number: GB-TEVA-2019-GB-1124478

PATIENT
  Age: 48 Year
  Sex: Male
  Weight: 129 kg

DRUGS (11)
  1. LISINOPRIL. [Concomitant]
     Active Substance: LISINOPRIL
     Dosage: 1 DF/ DAY
     Dates: start: 20160330
  2. LANSOPRAZOLE. [Concomitant]
     Active Substance: LANSOPRAZOLE
     Indication: DYSPEPSIA
     Dosage: 1 DF/ DAY
     Dates: start: 20190416
  3. VENTOLIN [Concomitant]
     Active Substance: ALBUTEROL SULFATE
     Dosage: TO RELIEVE THE SYMPTOMS, 2 DF
     Route: 055
     Dates: start: 20180824
  4. SILDENAFIL. [Concomitant]
     Active Substance: SILDENAFIL
     Dosage: USE AS DIRECTED
     Dates: start: 20190830
  5. PREDNISOLONE. [Concomitant]
     Active Substance: PREDNISOLONE
     Dosage: 8 DF/ DAY/ 5 DAYS
     Dates: start: 20190902, end: 20190907
  6. CO-AMOXICLAV [Suspect]
     Active Substance: AMOXICILLIN\CLAVULANATE POTASSIUM
     Dosage: 250MG/125MG
     Route: 065
     Dates: start: 20190923
  7. BECONASE AQ [Concomitant]
     Active Substance: BECLOMETHASONE DIPROPIONATE MONOHYDRATE
     Dosage: PUFFS, 4 DF/ DAY
     Dates: start: 20190830
  8. METFORMIN [Concomitant]
     Active Substance: METFORMIN HYDROCHLORIDE
     Dosage: TAKE ONE DAILY FOR TWO WEEKS, THEN TWICE DAILY AS INSTRUCTED.
     Dates: start: 20190712
  9. AMLODIPINE [Concomitant]
     Active Substance: AMLODIPINE BESYLATE
     Dosage: 1 DF/ DAY
     Dates: start: 20160330
  10. AMOXICILLIN. [Concomitant]
     Active Substance: AMOXICILLIN
     Dosage: 3 DF/ DAY/ 5 DAYS
     Dates: start: 20190902, end: 20190907
  11. FEXOFENADINE [Concomitant]
     Active Substance: FEXOFENADINE HYDROCHLORIDE
     Indication: SEASONAL ALLERGY
     Dosage: 1 DF/ DAY
     Dates: start: 20180305

REACTIONS (1)
  - Lip swelling [Recovered/Resolved]

NARRATIVE: CASE EVENT DATE: 20190926
